FAERS Safety Report 7522959-6 (Version None)
Quarter: 2011Q2

REPORT INFORMATION
  Report Type: 
  Country: None (occurrence: None)
  Receive Date: 20110603
  Receipt Date: 20110524
  Transmission Date: 20111010
  Serious: Yes (Other)
  Sender: FDA-Public Use
  Company Number: IT-BRISTOL-MYERS SQUIBB COMPANY-15771959

PATIENT
  Sex: Male
  Weight: 140 kg

DRUGS (2)
  1. METFORMIN HCL [Suspect]
  2. SAXAGLIPTIN [Suspect]

REACTIONS (1)
  - PANCREATITIS [None]
